FAERS Safety Report 11359837 (Version 13)
Quarter: 2016Q4

REPORT INFORMATION
  Report Type: Report from Study
  Country: KR (occurrence: KR)
  Receive Date: 20150809
  Receipt Date: 20161027
  Transmission Date: 20170206
  Serious: Yes (Hospitalization)
  Sender: FDA-Public Use
  Company Number: PHHO2014KR014558

PATIENT
  Age: 15 Year
  Sex: Female
  Weight: 58.6 kg

DRUGS (20)
  1. RAD001 [Suspect]
     Active Substance: EVEROLIMUS
     Dosage: 4 MG, UNK
     Route: 048
     Dates: start: 20160106, end: 20160304
  2. LAMICTAL [Concomitant]
     Active Substance: LAMOTRIGINE
     Indication: EPILEPSY
     Dosage: 25 MG, BID
     Route: 048
     Dates: start: 20110823
  3. TOPAMAX [Concomitant]
     Active Substance: TOPIRAMATE
     Dosage: 50 MG, BID
     Route: 048
     Dates: start: 20120703
  4. RAD001 [Suspect]
     Active Substance: EVEROLIMUS
     Dosage: 8 MG, (DOSE REDUCED)
     Route: 048
     Dates: start: 20140521, end: 20150814
  5. ARIPIPRAZOLE. [Concomitant]
     Active Substance: ARIPIPRAZOLE
     Dosage: 15 MG, QD (DOSE INCREASED)
     Route: 048
     Dates: start: 20150102
  6. SENTIL [Concomitant]
     Indication: EPILEPSY
     Dosage: 5 MG, BID
     Route: 048
     Dates: start: 20120410
  7. SENTIL [Concomitant]
     Dosage: 5 MG, QD
     Route: 048
     Dates: start: 20160225
  8. TOPAMAX [Concomitant]
     Active Substance: TOPIRAMATE
     Dosage: 50 MG, BID
     Route: 048
     Dates: start: 20150918
  9. BENZTROPINE [Concomitant]
     Active Substance: BENZTROPINE
     Indication: ATTENTION DEFICIT/HYPERACTIVITY DISORDER
     Dosage: 1 MG, QD
     Route: 048
     Dates: start: 20110920
  10. TOPAMAX [Concomitant]
     Active Substance: TOPIRAMATE
     Indication: EPILEPSY
     Dosage: 75 MG, BID
     Route: 048
     Dates: start: 20120612
  11. LAMICTAL [Concomitant]
     Active Substance: LAMOTRIGINE
     Dosage: 50 MG, BID
     Route: 048
  12. RAD001 [Suspect]
     Active Substance: EVEROLIMUS
     Dosage: 6 MG, UNK
     Route: 048
     Dates: start: 20150815, end: 20151026
  13. PLACEBO [Suspect]
     Active Substance: UNSPECIFIED INGREDIENT
     Dosage: 10 MG, UNK
     Route: 048
     Dates: start: 20131217, end: 20140422
  14. OLANZAPINE. [Concomitant]
     Active Substance: OLANZAPINE
     Indication: AFFECT LABILITY
     Dosage: 10 MG, QD
     Route: 048
     Dates: start: 20140612
  15. OLANZAPINE. [Concomitant]
     Active Substance: OLANZAPINE
     Dosage: 10 MG, QD
     Route: 048
     Dates: start: 20150102
  16. RAD001 [Suspect]
     Active Substance: EVEROLIMUS
     Dosage: NO TREATMENT
     Route: 065
     Dates: start: 20151027, end: 20151106
  17. ARIPIPRAZOLE. [Concomitant]
     Active Substance: ARIPIPRAZOLE
     Indication: ATTENTION DEFICIT/HYPERACTIVITY DISORDER
     Dosage: 10 MG, QD
     Route: 048
     Dates: start: 20120612, end: 20150101
  18. RAD001 [Suspect]
     Active Substance: EVEROLIMUS
     Indication: TUBEROUS SCLEROSIS
     Dosage: 10 MG, UNK
     Route: 048
     Dates: start: 20140422, end: 20140520
  19. RAD001 [Suspect]
     Active Substance: EVEROLIMUS
     Dosage: 6 MG, UNK
     Route: 048
     Dates: start: 20151107, end: 20160105
  20. TOPAMAX [Concomitant]
     Active Substance: TOPIRAMATE
     Dosage: 25 MG, DOSE REDUCED
     Route: 048

REACTIONS (5)
  - Affect lability [Recovered/Resolved]
  - Pneumonia [Recovered/Resolved]
  - Affect lability [Recovered/Resolved with Sequelae]
  - Affect lability [Recovered/Resolved]
  - Affect lability [Recovered/Resolved]

NARRATIVE: CASE EVENT DATE: 20141023
